FAERS Safety Report 18973685 (Version 1)
Quarter: 2021Q1

REPORT INFORMATION
  Report Type: Spontaneous
  Country: US (occurrence: US)
  Receive Date: 20210305
  Receipt Date: 20210305
  Transmission Date: 20210420
  Serious: No
  Sender: FDA-Public Use
  Company Number: US-ASTRAZENECA-2021A045837

PATIENT
  Sex: Female

DRUGS (1)
  1. SYMBICORT [Suspect]
     Active Substance: BUDESONIDE\FORMOTEROL FUMARATE DIHYDRATE
     Indication: ASTHMA
     Dosage: 80.0UG UNKNOWN
     Route: 055
     Dates: start: 2021

REACTIONS (4)
  - Drug ineffective [Unknown]
  - Oropharyngeal pain [Unknown]
  - Discomfort [Unknown]
  - Injury associated with device [Unknown]
